FAERS Safety Report 9143921 (Version 1)
Quarter: 2013Q1

REPORT INFORMATION
  Report Type: Report from Study
  Country: CN (occurrence: CN)
  Receive Date: 20130306
  Receipt Date: 20130306
  Transmission Date: 20140127
  Serious: Yes (Hospitalization)
  Sender: FDA-Public Use
  Company Number: PHHO2011CN15036

PATIENT
  Age: 57 Year
  Sex: Male
  Weight: 89 kg

DRUGS (5)
  1. ALISKIREN [Suspect]
     Indication: CARDIOVASCULAR DISORDER
     Route: 048
     Dates: start: 20081216, end: 20090112
  2. ALISKIREN [Suspect]
     Route: 048
     Dates: start: 20090113
  3. ACTOS [Concomitant]
     Indication: DIABETES MELLITUS
     Dosage: 15 MG, QD
     Dates: start: 20071125
  4. LOSARTAN [Concomitant]
     Indication: HYPERTENSION
     Dosage: 100 MG, QD
     Dates: start: 20071125
  5. NIFEDIPINE [Concomitant]
     Indication: HYPERTENSION
     Dosage: 30 MG, BID
     Dates: start: 20071125

REACTIONS (2)
  - Diabetic nephropathy [Recovering/Resolving]
  - Diabetes mellitus [Recovering/Resolving]
